FAERS Safety Report 9761129 (Version 1)
Quarter: 2013Q4

REPORT INFORMATION
  Report Type: Spontaneous
  Country: NL (occurrence: NL)
  Receive Date: 20131216
  Receipt Date: 20131216
  Transmission Date: 20140711
  Serious: Yes (Other)
  Sender: FDA-Public Use
  Company Number: NL-PFIZER INC-2013357940

PATIENT
  Age: 15 Year
  Sex: Female

DRUGS (1)
  1. ETHINYLESTRADIOL/LEVONORGESTREL [Suspect]
     Indication: MENSTRUATION IRREGULAR
     Dosage: 1 DF (150/30UG) 1X/DAY
     Dates: start: 20120926, end: 20131001

REACTIONS (3)
  - Haematochezia [Recovered/Resolved]
  - Abdominal discomfort [Recovered/Resolved]
  - Off label use [Recovered/Resolved]
